FAERS Safety Report 7578915-5 (Version None)
Quarter: 2011Q2

REPORT INFORMATION
  Report Type: 
  Country: None (occurrence: None)
  Receive Date: 20110628
  Receipt Date: 20110619
  Transmission Date: 20111010
  Serious: Yes (Hospitalization)
  Sender: FDA-Public Use
  Company Number: DE-PFIZER INC-2011134869

PATIENT
  Age: 53 Year
  Sex: Female

DRUGS (1)
  1. CELEBREX [Suspect]
     Dosage: 200 MG, SINGLE
     Dates: start: 20110416, end: 20110416

REACTIONS (2)
  - HYPOTENSION [None]
  - RASH GENERALISED [None]
